FAERS Safety Report 15885180 (Version 1)
Quarter: 2019Q1

REPORT INFORMATION
  Report Type: Spontaneous
  Country: GB (occurrence: GB)
  Receive Date: 20190129
  Receipt Date: 20190129
  Transmission Date: 20190417
  Serious: Yes (Other)
  Sender: FDA-Public Use
  Company Number: GB-GLAXOSMITHKLINE-GB2019014206

PATIENT
  Age: 10 Year
  Sex: Female

DRUGS (2)
  1. RENNIE (CALCIUM CARBONATE + MAGNESIUM CARBONATE) [Concomitant]
     Indication: PRODUCT USED FOR UNKNOWN INDICATION
     Dosage: UNK
     Route: 065
  2. RANITIDINE. [Suspect]
     Active Substance: RANITIDINE
     Indication: ABDOMINAL PAIN UPPER
     Dosage: 75MG/5ML TWICE DAILY
     Route: 048
     Dates: start: 20190108, end: 20190111

REACTIONS (3)
  - Rash [Recovering/Resolving]
  - Abdominal pain upper [Recovering/Resolving]
  - Condition aggravated [Recovering/Resolving]

NARRATIVE: CASE EVENT DATE: 20190110
